FAERS Safety Report 16532936 (Version 1)
Quarter: 2019Q3

REPORT INFORMATION
  Report Type: Spontaneous
  Country: FR (occurrence: FR)
  Receive Date: 20190705
  Receipt Date: 20190705
  Transmission Date: 20191004
  Serious: Yes (Hospitalization, Congenital Anomaly, Other)
  Sender: FDA-Public Use
  Company Number: FR-MYLANLABS-2019M1060994

PATIENT
  Sex: Male

DRUGS (2)
  1. CARBAMAZEPINE. [Suspect]
     Active Substance: CARBAMAZEPINE
     Indication: PRODUCT USED FOR UNKNOWN INDICATION
     Dosage: UNK
     Route: 064
     Dates: start: 197912, end: 19800812
  2. DEPAKINE                           /00228501/ [Suspect]
     Active Substance: VALPROIC ACID
     Indication: PRODUCT USED FOR UNKNOWN INDICATION
     Dosage: UNK
     Route: 064
     Dates: start: 197912, end: 19800812

REACTIONS (12)
  - Dysmorphism [Unknown]
  - Learning disability [Unknown]
  - Psychomotor retardation [Unknown]
  - Dysgraphia [Unknown]
  - Cardiac disorder [Recovered/Resolved]
  - Inguinal hernia [Recovered/Resolved]
  - Cognitive disorder [Unknown]
  - Pleural effusion [Recovered/Resolved]
  - Somatic symptom disorder [Unknown]
  - Foetal exposure during pregnancy [Unknown]
  - Pneumonia [Recovered/Resolved]
  - Speech disorder [Unknown]

NARRATIVE: CASE EVENT DATE: 197912
